FAERS Safety Report 16486500 (Version 1)
Quarter: 2019Q2

REPORT INFORMATION
  Report Type: Report from Study
  Country: US (occurrence: US)
  Receive Date: 20190627
  Receipt Date: 20190627
  Transmission Date: 20190711
  Serious: Yes (Other)
  Sender: FDA-Public Use
  Company Number: US-TEVA-2019-US-1067977

PATIENT
  Age: 61 Year
  Sex: Female

DRUGS (5)
  1. METHOTREXATE. [Suspect]
     Active Substance: METHOTREXATE
     Indication: DIFFUSE LARGE B-CELL LYMPHOMA STAGE IV
     Dosage: ON DAY 1 OF R-DHAP (RITUXIMAB, DEXAMETHASONE, HIGH DOSE CYTARABINE AND CISPLATIN) REGIMEN INITIAT...
     Route: 037
  2. RITUXIMAB. [Concomitant]
     Active Substance: RITUXIMAB
     Indication: DIFFUSE LARGE B-CELL LYMPHOMA STAGE IV
     Dosage: RECEIVED AS A PART OF R-DHAP (RITUXIMAB, DEXAMETHASONE, HIGH DOSE CYTARABINE AND CISPLATIN) REGIMEN.
     Route: 065
  3. DEXAMETHASONE. [Concomitant]
     Active Substance: DEXAMETHASONE
     Indication: DIFFUSE LARGE B-CELL LYMPHOMA STAGE IV
     Dosage: RECEIVED AS A PART OF R-DHAP (RITUXIMAB, DEXAMETHASONE, HIGH DOSE CYTARABINE AND CISPLATIN) REGIMEN.
     Route: 065
  4. CYTARABINE. [Suspect]
     Active Substance: CYTARABINE
     Indication: DIFFUSE LARGE B-CELL LYMPHOMA STAGE IV
     Dosage: ON DAY 1 OF R-DHAP (RITUXIMAB, DEXAMETHASONE, HIGH DOSE CYTARABINE AND CISPLATIN) REGIMEN INITIAT...
     Route: 037
  5. CISPLATIN. [Concomitant]
     Active Substance: CISPLATIN
     Indication: DIFFUSE LARGE B-CELL LYMPHOMA STAGE IV
     Dosage: RECEIVED AS A PART OF R-DHAP (RITUXIMAB, DEXAMETHASONE, HIGH DOSE CYTARABINE AND CISPLATIN) REGIMEN.
     Route: 065

REACTIONS (5)
  - Neurotoxicity [Not Recovered/Not Resolved]
  - Diplegia [Unknown]
  - Urinary retention [Unknown]
  - Walking disability [Unknown]
  - Anal incontinence [Unknown]
